FAERS Safety Report 9726280 (Version 1)
Quarter: 2013Q4

REPORT INFORMATION
  Report Type: Spontaneous
  Country: US (occurrence: None)
  Receive Date: 20131202
  Receipt Date: 20131202
  Transmission Date: 20140711
  Serious: Yes (Hospitalization)
  Sender: FDA-Public Use
  Company Number: None

PATIENT
  Age: 30 Year
  Sex: Female
  Weight: 82.95 kg

DRUGS (1)
  1. SUNITINIB MALATE [Suspect]
     Dates: end: 20131104

REACTIONS (3)
  - Dyspnoea [None]
  - Respiratory failure [None]
  - Metastatic neoplasm [None]
